FAERS Safety Report 7455025-9 (Version None)
Quarter: 2011Q2

REPORT INFORMATION
  Report Type: 
  Country: None (occurrence: None)
  Receive Date: 20110503
  Receipt Date: 20110426
  Transmission Date: 20111010
  Serious: Yes (Other)
  Sender: FDA-Public Use
  Company Number: US-PFIZER INC-2005012961

PATIENT
  Sex: Male
  Weight: 79.38 kg

DRUGS (2)
  1. DILANTIN [Suspect]
     Indication: GRAND MAL CONVULSION
     Route: 048
     Dates: start: 19750101
  2. VITAMIN D [Concomitant]

REACTIONS (10)
  - OSTEOPOROSIS [None]
  - CONVULSION [None]
  - ANXIETY [None]
  - FATIGUE [None]
  - STRESS [None]
  - FEELING ABNORMAL [None]
  - SPLENOMEGALY [None]
  - CHILLS [None]
  - GAMMA-GLUTAMYLTRANSFERASE INCREASED [None]
  - PLATELET COUNT DECREASED [None]
